FAERS Safety Report 21635891 (Version 1)
Quarter: 2022Q4

REPORT INFORMATION
  Report Type: Spontaneous
  Country: US (occurrence: US)
  Receive Date: 20221123
  Receipt Date: 20221123
  Transmission Date: 20230113
  Serious: No
  Sender: FDA-Public Use
  Company Number: US-ABBVIE-4194035

PATIENT
  Sex: Male

DRUGS (2)
  1. TESTOSTERONE [Suspect]
     Active Substance: TESTOSTERONE
     Indication: Product used for unknown indication
     Dosage: 1% 2.5 GM
     Route: 065
  2. TESTOSTERONE [Suspect]
     Active Substance: TESTOSTERONE
     Indication: Product used for unknown indication
     Route: 065

REACTIONS (5)
  - Haematocrit decreased [Unknown]
  - Blood testosterone decreased [Unknown]
  - Overdose [Unknown]
  - Unevaluable event [Unknown]
  - Red blood cell count decreased [Unknown]
